FAERS Safety Report 15103735 (Version 9)
Quarter: 2018Q4

REPORT INFORMATION
  Report Type: Spontaneous
  Country: SK (occurrence: SK)
  Receive Date: 20180703
  Receipt Date: 20181105
  Transmission Date: 20190204
  Serious: Yes (Other)
  Sender: FDA-Public Use
  Company Number: SK-PFIZER INC-2018263745

PATIENT
  Age: 30 Year
  Sex: Male

DRUGS (1)
  1. SERTRALINE HCL [Suspect]
     Active Substance: SERTRALINE HYDROCHLORIDE
     Indication: DEPRESSION
     Dosage: UNK
     Dates: start: 2014

REACTIONS (8)
  - Anhedonia [Unknown]
  - Drug ineffective [Unknown]
  - Mental impairment [Unknown]
  - Antisocial behaviour [Unknown]
  - Asthenia [Unknown]
  - Bradyphrenia [Unknown]
  - Abulia [Unknown]
  - Apathy [Unknown]

NARRATIVE: CASE EVENT DATE: 2014
